FAERS Safety Report 26156613 (Version 1)
Quarter: 2025Q4

REPORT INFORMATION
  Report Type: Spontaneous
  Country: US (occurrence: US)
  Receive Date: 20251215
  Receipt Date: 20251215
  Transmission Date: 20260117
  Serious: No
  Sender: VIVUS
  Company Number: US-VIVUS LLC-2025V10000799

PATIENT

DRUGS (2)
  1. PANCREAZE [Suspect]
     Active Substance: PANCRELIPASE AMYLASE\PANCRELIPASE LIPASE\PANCRELIPASE PROTEASE
     Indication: Product used for unknown indication
     Dosage: 37,000 UNITS
     Route: 048
  2. PANCREAZE [Suspect]
     Active Substance: PANCRELIPASE AMYLASE\PANCRELIPASE LIPASE\PANCRELIPASE PROTEASE
     Dosage: 21,000 UNITS
     Route: 048

REACTIONS (6)
  - Abdominal discomfort [Recovering/Resolving]
  - Limb discomfort [Unknown]
  - Muscle spasms [Unknown]
  - Diarrhoea [Recovering/Resolving]
  - Flatulence [Unknown]
  - Abdominal pain upper [Recovering/Resolving]
